FAERS Safety Report 14845859 (Version 3)
Quarter: 2018Q4

REPORT INFORMATION
  Report Type: Spontaneous
  Country: GB (occurrence: GB)
  Receive Date: 20180504
  Receipt Date: 20181015
  Transmission Date: 20190204
  Serious: Yes (Other)
  Sender: FDA-Public Use
  Company Number: GB-BAUSCH-BL-2018-012574

PATIENT
  Age: 55 Year
  Sex: Female

DRUGS (6)
  1. ACICLOVIR [Concomitant]
     Active Substance: ACYCLOVIR
     Indication: PROPHYLAXIS
     Route: 048
     Dates: start: 2013
  2. ATOVAQUONE. [Concomitant]
     Active Substance: ATOVAQUONE
     Indication: PROPHYLAXIS
     Route: 048
     Dates: start: 201709
  3. DEXAMETHASONE. [Suspect]
     Active Substance: DEXAMETHASONE
     Indication: PLASMA CELL MYELOMA
     Route: 048
     Dates: start: 201709
  4. LANSOPRAZOLE. [Concomitant]
     Active Substance: LANSOPRAZOLE
     Indication: PRODUCT USED FOR UNKNOWN INDICATION
     Dates: start: 201709
  5. LENALIDOMIDE [Concomitant]
     Active Substance: LENALIDOMIDE
     Indication: PLASMA CELL MYELOMA
     Route: 048
     Dates: start: 201709
  6. NINLARO [Suspect]
     Active Substance: IXAZOMIB CITRATE
     Indication: PLASMA CELL MYELOMA
     Route: 048
     Dates: start: 20170106, end: 20180309

REACTIONS (3)
  - Invasive lobular breast carcinoma [Not Recovered/Not Resolved]
  - Lobular breast carcinoma in situ [Not Recovered/Not Resolved]
  - Phyllodes tumour [Not Recovered/Not Resolved]

NARRATIVE: CASE EVENT DATE: 20180219
